FAERS Safety Report 4848020-7 (Version None)
Quarter: 2005Q4

REPORT INFORMATION
  Report Type: 
  Country: None (occurrence: None)
  Receive Date: 20051206
  Receipt Date: 20051117
  Transmission Date: 20060501
  Serious: Yes (Hospitalization)
  Sender: FDA-Public Use
  Company Number: DE200511000133

PATIENT
  Age: 56 Year
  Sex: Male

DRUGS (11)
  1. ALIMTA [Suspect]
     Indication: NON-SMALL CELL LUNG CANCER
     Dosage: 500 MG/M2, INTRAVENOUS
     Route: 042
     Dates: start: 20051017, end: 20051017
  2. FOLIC ACID [Concomitant]
  3. VITAMIN B12 [Concomitant]
  4. DEXAMETHASONE [Concomitant]
  5. BETA-ACETYLDIGOXIN              (BETA-ACETYLDIGOXIN) [Concomitant]
  6. FUROSEMIDE [Concomitant]
  7. ENALAPRIL MALEATE [Concomitant]
  8. CIPROFLOXACIN [Concomitant]
  9. IBUPROFEN [Concomitant]
  10. BISOPROLOL (BISOPROLOL) [Concomitant]
  11. DIMENHYDRINATE [Concomitant]

REACTIONS (4)
  - CEREBROVASCULAR ACCIDENT [None]
  - ISCHAEMIC CEREBRAL INFARCTION [None]
  - NAUSEA [None]
  - VOMITING [None]
